FAERS Safety Report 9515494 (Version 2)
Quarter: 2013Q3

REPORT INFORMATION
  Report Type: Report from Study
  Country: CA (occurrence: CA)
  Receive Date: 20130911
  Receipt Date: 20130911
  Transmission Date: 20140515
  Serious: Yes (Death)
  Sender: FDA-Public Use
  Company Number: PHHY2012CA044310

PATIENT
  Age: 74 Year
  Sex: Male

DRUGS (1)
  1. EXELON PATCH [Suspect]
     Indication: DEMENTIA ALZHEIMER^S TYPE
     Dosage: 9.5 MG (PATCH 10 CM2), QD
     Route: 062
     Dates: start: 20120422

REACTIONS (2)
  - Death [Fatal]
  - Application site erythema [Unknown]
